FAERS Safety Report 8889827 (Version 1)
Quarter: 2012Q4

REPORT INFORMATION
  Report Type: 
  Country: US (occurrence: US)
  Receive Date: 20121107
  Receipt Date: 20121107
  Transmission Date: 20130627
  Serious: No
  Sender: FDA-Public Use
  Company Number: US-009507513-1211USA000494

PATIENT
  Sex: Female

DRUGS (1)
  1. SAPHRIS [Suspect]
     Indication: BIPOLAR DISORDER
     Dosage: 5 mg, hs
     Route: 060
     Dates: start: 20121016, end: 20121019

REACTIONS (2)
  - Oral mucosal blistering [Recovering/Resolving]
  - Underdose [Unknown]
